FAERS Safety Report 16759766 (Version 2)
Quarter: 2019Q3

REPORT INFORMATION
  Report Type: Report from Study
  Country: AR (occurrence: AR)
  Receive Date: 20190830
  Receipt Date: 20190916
  Transmission Date: 20191005
  Serious: Yes (Hospitalization, Other)
  Sender: FDA-Public Use
  Company Number: PHHY2015AR032331

PATIENT
  Age: 60 Year
  Sex: Male

DRUGS (3)
  1. TRILEPTAL [Suspect]
     Active Substance: OXCARBAZEPINE
     Indication: EPILEPSY
     Dosage: 900 MG, QD (300MG IN THE MORNING AND 600MG AT NIGHT)
     Route: 065
     Dates: start: 201906
  2. TRILEPTAL [Suspect]
     Active Substance: OXCARBAZEPINE
     Indication: SEIZURE
     Dosage: 600 MG, UNK
     Route: 065
     Dates: start: 2007
  3. PHENOBARBITAL. [Concomitant]
     Active Substance: PHENOBARBITAL
     Indication: SLEEP DISORDER
     Dosage: 1 DF, UNK
     Route: 065

REACTIONS (7)
  - Road traffic accident [Unknown]
  - Somnolence [Recovering/Resolving]
  - Memory impairment [Recovering/Resolving]
  - Visual impairment [Unknown]
  - Seizure [Recovering/Resolving]
  - Petit mal epilepsy [Recovered/Resolved]
  - Withdrawal syndrome [Recovered/Resolved]

NARRATIVE: CASE EVENT DATE: 201905
